FAERS Safety Report 9741190 (Version 2)
Quarter: 2014Q1

REPORT INFORMATION
  Report Type: Spontaneous
  Country: DK (occurrence: FR)
  Receive Date: 20131209
  Receipt Date: 20140211
  Transmission Date: 20141002
  Serious: Yes (Other)
  Sender: FDA-Public Use
  Company Number: FR-FRI-1000051969

PATIENT
  Sex: Female

DRUGS (4)
  1. ESCITALOPRAM [Suspect]
     Indication: ABDOMINAL DISCOMFORT
     Dosage: 10 MG
     Route: 048
     Dates: start: 201311
  2. ESCITALOPRAM [Suspect]
     Indication: APHAGIA
  3. ESCITALOPRAM [Suspect]
     Indication: FATIGUE
  4. ESCITALOPRAM [Suspect]
     Indication: ADJUSTMENT DISORDER

REACTIONS (4)
  - Anxiety [Recovering/Resolving]
  - Initial insomnia [Recovering/Resolving]
  - Muscle contracture [Recovering/Resolving]
  - Off label use [Recovering/Resolving]
